FAERS Safety Report 5263644-3 (Version None)
Quarter: 2007Q1

REPORT INFORMATION
  Report Type: 
  Country: None (occurrence: None)
  Receive Date: 20061213
  Receipt Date: 20040819
  Transmission Date: 20070707
  Serious: Yes (Disabling)
  Sender: FDA-Public Use
  Company Number: 2004UW12985

PATIENT
  Age: 45 Year
  Sex: Female
  Weight: 58.514 kg

DRUGS (2)
  1. IRESSA [Suspect]
     Indication: NON-SMALL CELL LUNG CANCER
     Dosage: 250 MG QD PO
     Route: 048
     Dates: start: 20040607, end: 20040621
  2. AREDIA [Concomitant]

REACTIONS (1)
  - INTERSTITIAL LUNG DISEASE [None]
